FAERS Safety Report 17958012 (Version 2)
Quarter: 2020Q3

REPORT INFORMATION
  Report Type: Spontaneous
  Country: US (occurrence: US)
  Receive Date: 20200629
  Receipt Date: 20200713
  Transmission Date: 20201103
  Serious: No
  Sender: FDA-Public Use
  Company Number: US-LEXICON PHARMACEUTICALS, INC-20-1606-00486

PATIENT
  Age: 70 Year
  Sex: Female

DRUGS (1)
  1. XERMELO [Suspect]
     Active Substance: TELOTRISTAT ETHYL
     Indication: CARCINOID SYNDROME
     Dates: start: 20200420, end: 202006

REACTIONS (4)
  - Anxiety [Recovered/Resolved]
  - Constipation [Unknown]
  - Abdominal pain [Unknown]
  - Depressed mood [Recovered/Resolved]
